FAERS Safety Report 6383727-4 (Version None)
Quarter: 2009Q4

REPORT INFORMATION
  Report Type: 
  Country: None (occurrence: None)
  Receive Date: 20091001
  Receipt Date: 20090317
  Transmission Date: 20100525
  Serious: Yes (Hospitalization)
  Sender: FDA-Public Use
  Company Number: AU-BAXTER-2009BH004298

PATIENT
  Age: 11 Year
  Sex: Male
  Weight: 57 kg

DRUGS (2)
  1. ADVATE [Suspect]
     Indication: FACTOR VIII DEFICIENCY
     Route: 042
     Dates: start: 20071213
  2. ADVATE [Suspect]
     Route: 042
     Dates: start: 20080918

REACTIONS (1)
  - GLAUCOMA [None]
